FAERS Safety Report 4736470-9 (Version None)
Quarter: 2005Q3

REPORT INFORMATION
  Report Type: 
  Country: None (occurrence: None)
  Receive Date: 20050806
  Receipt Date: 20050806
  Transmission Date: 20060218
  Serious: Yes (Other)
  Sender: FDA-Public Use
  Company Number: None

PATIENT
  Age: 62 Year
  Sex: Female
  Weight: 58.9676 kg

DRUGS (3)
  1. BICILLIN [Suspect]
     Indication: LYME DISEASE
     Dosage: 1.2 MILLION 1 M Q WK
     Dates: start: 20031204, end: 20040501
  2. VITAMINS [Concomitant]
  3. CHINESE HERBAL TEA [Concomitant]

REACTIONS (2)
  - JAW DISORDER [None]
  - TREMOR [None]
